FAERS Safety Report 15784254 (Version 2)
Quarter: 2019Q1

REPORT INFORMATION
  Report Type: Report from Study
  Country: None (occurrence: CA)
  Receive Date: 20190103
  Receipt Date: 20190201
  Transmission Date: 20190417
  Serious: Yes (Death, Hospitalization)
  Sender: FDA-Public Use
  Company Number: CA-ABBVIE-19K-028-2610836-00

PATIENT
  Sex: Male
  Weight: 65.8 kg

DRUGS (2)
  1. TAMSULOSIN [Concomitant]
     Active Substance: TAMSULOSIN
     Indication: PRODUCT USED FOR UNKNOWN INDICATION
     Route: 048
  2. VENCLEXTA [Suspect]
     Active Substance: VENETOCLAX
     Indication: ACUTE MYELOID LEUKAEMIA
     Route: 048
     Dates: start: 20180124, end: 20181225

REACTIONS (3)
  - Febrile neutropenia [Unknown]
  - Acute myeloid leukaemia recurrent [Fatal]
  - Sepsis [Unknown]

NARRATIVE: CASE EVENT DATE: 2018
